FAERS Safety Report 10177059 (Version 2)
Quarter: 2014Q2

REPORT INFORMATION
  Report Type: Report from Study
  Country: US (occurrence: US)
  Receive Date: 20140516
  Receipt Date: 20140604
  Transmission Date: 20141212
  Serious: Yes (Death)
  Sender: FDA-Public Use
  Company Number: US-PFIZER INC-2014130991

PATIENT
  Age: 8 Year
  Sex: Female
  Weight: 25.2 kg

DRUGS (4)
  1. SUTENT [Suspect]
     Indication: NEUROFIBROMA
     Dosage: 6.25 MG, DAILY, 28 DAYS ON AND 14 OFF (42 DAY CYCLE)
     Route: 048
     Dates: start: 20121016, end: 20140510
  2. LIDODERM PATCH [Concomitant]
     Indication: PAIN
     Dosage: 5 %, EXTERNAL PATCH
     Route: 062
  3. LEVOTHYROXINE SODIUM [Concomitant]
     Indication: PRIMARY HYPOTHYROIDISM
     Dosage: 125 UG, UNK
     Route: 048
     Dates: start: 2009, end: 20140510
  4. SEPTRA [Concomitant]
     Indication: URINARY TRACT INFECTION
     Dosage: 200-40 MG/5ML SUSPENSION, 10 ML, UNK
     Route: 048
     Dates: start: 20140502

REACTIONS (1)
  - Cardiac arrest [Fatal]
